FAERS Safety Report 7825259-X (Version None)
Quarter: 2011Q4

REPORT INFORMATION
  Report Type: 
  Country: None (occurrence: None)
  Receive Date: 20111019
  Receipt Date: 20111014
  Transmission Date: 20120403
  Serious: Yes (Death)
  Sender: FDA-Public Use
  Company Number: US-GLAXOSMITHKLINE-A0941284A

PATIENT
  Age: 69 Year
  Sex: Female

DRUGS (3)
  1. TYKERB [Suspect]
     Indication: BREAST CANCER
     Dosage: 1250MG PER DAY
     Route: 048
     Dates: start: 20091019, end: 20110629
  2. ZOMETA [Concomitant]
     Indication: METASTASES TO BONE
     Dosage: 4MG SEE DOSAGE TEXT
     Route: 042
     Dates: start: 20110301, end: 20110629
  3. XELODA [Concomitant]

REACTIONS (1)
  - DEATH [None]
